FAERS Safety Report 5936171-5 (Version None)
Quarter: 2008Q4

REPORT INFORMATION
  Report Type: 
  Country: None (occurrence: None)
  Receive Date: 20081030
  Receipt Date: 20081021
  Transmission Date: 20090506
  Serious: Yes (Life-Threatening)
  Sender: FDA-Public Use
  Company Number: IT-PFIZER INC-2008088971

PATIENT
  Sex: Female

DRUGS (3)
  1. LYRICA [Suspect]
     Indication: NEURALGIA
     Route: 048
     Dates: start: 20080814, end: 20080815
  2. DEPAKENE [Concomitant]
  3. EUTIROX [Concomitant]

REACTIONS (1)
  - EPILEPSY [None]
